FAERS Safety Report 23654466 (Version 4)
Quarter: 2024Q2

REPORT INFORMATION
  Report Type: Spontaneous
  Country: GB (occurrence: GB)
  Receive Date: 20240320
  Receipt Date: 20240410
  Transmission Date: 20240717
  Serious: Yes (Disabling)
  Sender: FDA-Public Use
  Company Number: GB-Eisai-EC-2024-161475

PATIENT
  Age: 70 Year
  Sex: Female
  Weight: 58.7 kg

DRUGS (5)
  1. LENVATINIB [Suspect]
     Active Substance: LENVATINIB
     Indication: Endometrial cancer
     Route: 048
     Dates: start: 202312, end: 20240204
  2. LENVATINIB [Suspect]
     Active Substance: LENVATINIB
     Route: 048
     Dates: start: 20240205
  3. LENVATINIB [Suspect]
     Active Substance: LENVATINIB
     Route: 048
     Dates: start: 202402
  4. KEYTRUDA [Suspect]
     Active Substance: PEMBROLIZUMAB
     Indication: Endometrial cancer
     Route: 041
     Dates: start: 20231214, end: 20240226
  5. KEYTRUDA [Suspect]
     Active Substance: PEMBROLIZUMAB
     Route: 041
     Dates: start: 20240318

REACTIONS (9)
  - Immune-mediated neuropathy [Recovered/Resolved]
  - Cold dysaesthesia [Recovering/Resolving]
  - Peripheral coldness [Recovered/Resolved]
  - Dry skin [Recovering/Resolving]
  - Product use issue [Unknown]
  - Oral toxicity [Unknown]
  - Fatigue [Unknown]
  - Mouth ulceration [Unknown]
  - Hypertension [Unknown]

NARRATIVE: CASE EVENT DATE: 20240201
